APPROVED DRUG PRODUCT: BUDESONIDE
Active Ingredient: BUDESONIDE
Strength: 3MG
Dosage Form/Route: CAPSULE, DELAYED RELEASE;ORAL
Application: A206200 | Product #001 | TE Code: AB
Applicant: AMNEAL PHARMACEUTICALS OF NEW YORK LLC
Approved: Jul 31, 2017 | RLD: No | RS: No | Type: RX